FAERS Safety Report 12686588 (Version 1)
Quarter: 2016Q3

REPORT INFORMATION
  Report Type: Spontaneous
  Country: US (occurrence: US)
  Receive Date: 20160825
  Receipt Date: 20160825
  Transmission Date: 20161109
  Serious: No
  Sender: FDA-Public Use
  Company Number: US-JAZZ-2016-US-006932

PATIENT
  Sex: Female

DRUGS (17)
  1. PROMETHAZINE [Concomitant]
     Active Substance: PROMETHAZINE\PROMETHAZINE HYDROCHLORIDE
  2. LOESTRIN NOS [Concomitant]
     Active Substance: ETHINYL ESTRADIOL\NORETHINDRONE ACETATE
  3. XYREM [Suspect]
     Active Substance: SODIUM OXYBATE
     Indication: NARCOLEPSY
     Dosage: 2.5 G, FIRST DOSE
     Route: 048
     Dates: start: 200607, end: 200608
  4. AMBIEN CR [Concomitant]
     Active Substance: ZOLPIDEM TARTRATE
  5. ZOLOFT [Concomitant]
     Active Substance: SERTRALINE HYDROCHLORIDE
  6. TRAMADOL HCL [Concomitant]
     Active Substance: TRAMADOL HYDROCHLORIDE
  7. DEXEDRINE [Concomitant]
     Active Substance: DEXTROAMPHETAMINE SULFATE
  8. RITALIN [Concomitant]
     Active Substance: METHYLPHENIDATE HYDROCHLORIDE
  9. XYREM [Suspect]
     Active Substance: SODIUM OXYBATE
     Dosage: DOSE ADJUSTMENTS
     Route: 048
  10. XYREM [Suspect]
     Active Substance: SODIUM OXYBATE
     Dosage: 4.5 G, BID
     Route: 048
     Dates: start: 200711
  11. AMBIEN [Concomitant]
     Active Substance: ZOLPIDEM TARTRATE
  12. POTASSIUM [Concomitant]
     Active Substance: POTASSIUM
  13. XYREM [Suspect]
     Active Substance: SODIUM OXYBATE
     Dosage: 2 G, SECOND DOSE
     Route: 048
     Dates: start: 200607, end: 200608
  14. HYDROCODONE/ACETAMINOPHEN [Concomitant]
     Active Substance: ACETAMINOPHEN\HYDROCODONE
  15. LORAZEPAM. [Concomitant]
     Active Substance: LORAZEPAM
  16. MAGNESIUM [Concomitant]
     Active Substance: MAGNESIUM
  17. DEXTROSTAT [Suspect]
     Active Substance: DEXTROAMPHETAMINE SULFATE
     Dosage: UNKNOWN DOSE
     Route: 048

REACTIONS (10)
  - Therapeutic response unexpected [Unknown]
  - Ligament sprain [Unknown]
  - Pre-existing condition improved [Unknown]
  - Weight increased [Unknown]
  - Nausea [Unknown]
  - Back injury [Unknown]
  - Musculoskeletal stiffness [Unknown]
  - Joint dislocation [Not Recovered/Not Resolved]
  - Anxiety [Recovering/Resolving]
  - Pregnancy [Recovered/Resolved]
